FAERS Safety Report 5202676-8 (Version None)
Quarter: 2006Q4

REPORT INFORMATION
  Report Type: 
  Country: None (occurrence: None)
  Receive Date: 20061016
  Receipt Date: 20060811
  Transmission Date: 20070319
  Serious: No
  Sender: FDA-Public Use
  Company Number: 2006SP002987

PATIENT
  Age: 79 Year
  Sex: Female
  Weight: 61.6892 kg

DRUGS (8)
  1. LUNESTA [Suspect]
     Indication: INSOMNIA
     Dosage: 3 MG;QOD;ORAL
     Route: 048
     Dates: start: 20060101
  2. SYNTHROID [Concomitant]
  3. FEXOFENADINE [Concomitant]
  4. HYDROCHLORIDE [Concomitant]
  5. METOPROLOL SUCCINATE [Concomitant]
  6. PANTOPRAZOLE SODIUM [Concomitant]
  7. ZOMETA [Concomitant]
  8. XANAX [Concomitant]

REACTIONS (2)
  - DRUG EFFECT DECREASED [None]
  - DYSGEUSIA [None]
